FAERS Safety Report 9324237 (Version 1)
Quarter: 2013Q2

REPORT INFORMATION
  Report Type: Spontaneous
  Country: FR (occurrence: FR)
  Receive Date: 20130603
  Receipt Date: 20130603
  Transmission Date: 20140414
  Serious: Yes (Hospitalization)
  Sender: FDA-Public Use
  Company Number: PHHY2013FR055038

PATIENT
  Sex: 0

DRUGS (1)
  1. LEELOO [Suspect]
     Indication: CONTRACEPTION
     Dosage: UNK
     Route: 048
     Dates: end: 20121130

REACTIONS (2)
  - Hemiplegia [Recovering/Resolving]
  - Cerebrovascular accident [Recovering/Resolving]
